FAERS Safety Report 5269734-3 (Version None)
Quarter: 2007Q1

REPORT INFORMATION
  Report Type: 
  Country: None (occurrence: None)
  Receive Date: 20070320
  Receipt Date: 20070308
  Transmission Date: 20070707
  Serious: Yes (Death, Hospitalization)
  Sender: FDA-Public Use
  Company Number: SE-ROCHE-482870

PATIENT
  Age: 45 Year
  Sex: Female

DRUGS (5)
  1. CYMEVENE [Suspect]
     Indication: CYTOMEGALOVIRUS GASTROINTESTINAL INFECTION
     Dosage: REPORTED FORM: POWDER FOR SOLUTION FOR INFUSION. REDUCED DOSE DUE TO RENAL FAILURE.
     Route: 042
     Dates: start: 20000601, end: 20000604
  2. TAZOCIN [Suspect]
     Dosage: REPORTED FORM: POWDER FOR SOLUTION FOR INJECTION/INFUSION.
     Route: 065
     Dates: start: 20000602, end: 20000609
  3. AMBISOME [Suspect]
     Dosage: REPORTED FORM: POWDER FOR SOLUTION FOR INFUSION.
     Route: 065
     Dates: start: 20000524, end: 20000605
  4. PRECORTALON [Concomitant]
     Dosage: REPORTED DRUG NAME: PRECORTALON AQUOSUM.
  5. SANDIMMUNE [Concomitant]

REACTIONS (2)
  - HYPERBILIRUBINAEMIA [None]
  - RENAL FAILURE [None]
